FAERS Safety Report 9606755 (Version 1)
Quarter: 2013Q4

REPORT INFORMATION
  Report Type: Spontaneous
  Country: US (occurrence: US)
  Receive Date: 20131008
  Receipt Date: 20131008
  Transmission Date: 20140711
  Serious: No
  Sender: FDA-Public Use
  Company Number: US-AMGEN-USASP2013063085

PATIENT
  Age: 58 Year
  Sex: Female

DRUGS (8)
  1. PROLIA [Suspect]
     Indication: OSTEOPOROSIS POSTMENOPAUSAL
     Dosage: 60 MG, UNK
     Route: 065
     Dates: start: 20120918
  2. PRAVACHOL [Concomitant]
     Dosage: 80 MG, QD
     Route: 065
  3. ASMANEX [Concomitant]
     Route: 065
  4. FLONASE                            /00908302/ [Concomitant]
     Route: 065
  5. LYSINE [Concomitant]
     Route: 065
  6. CALCIUM [Concomitant]
     Route: 065
  7. IRON [Concomitant]
     Route: 065
  8. VITAMIN E                          /00110501/ [Concomitant]
     Route: 065

REACTIONS (1)
  - Dandruff [Recovered/Resolved]
